FAERS Safety Report 16590637 (Version 1)
Quarter: 2019Q3

REPORT INFORMATION
  Report Type: Spontaneous
  Country: US (occurrence: US)
  Receive Date: 20190717
  Receipt Date: 20190717
  Transmission Date: 20191004
  Serious: Yes (Other)
  Sender: FDA-Public Use
  Company Number: None

PATIENT
  Age: 59 Year
  Sex: Female
  Weight: 94.5 kg

DRUGS (11)
  1. HYDROMORPHONE [Concomitant]
     Active Substance: HYDROMORPHONE
  2. IBUPROFEN. [Concomitant]
     Active Substance: IBUPROFEN
  3. TAFINLAR [Suspect]
     Active Substance: DABRAFENIB MESYLATE
     Indication: MALIGNANT MELANOMA
     Route: 048
     Dates: start: 20190617, end: 20190717
  4. LISINOPRIL. [Concomitant]
     Active Substance: LISINOPRIL
  5. MEKINIST [Suspect]
     Active Substance: TRAMETINIB DIMETHYL SULFOXIDE
     Indication: MALIGNANT MELANOMA
     Route: 048
     Dates: start: 20190617, end: 20190717
  6. ACETAMINOPHEN ES [Concomitant]
  7. GLUCOSAMINE CHONDR 1500 COMPLEX [Concomitant]
  8. PROHANCE [Concomitant]
     Active Substance: GADOTERIDOL
  9. METRONIDAZOLE. [Concomitant]
     Active Substance: METRONIDAZOLE
  10. ALEVE [Concomitant]
     Active Substance: NAPROXEN SODIUM
  11. SENNA-DOCUSATE [Concomitant]
     Active Substance: DOCUSATE SODIUM\SENNOSIDES

REACTIONS (2)
  - Pyrexia [None]
  - Chills [None]

NARRATIVE: CASE EVENT DATE: 20190717
